FAERS Safety Report 8233607-4 (Version None)
Quarter: 2012Q1

REPORT INFORMATION
  Report Type: 
  Country: None (occurrence: None)
  Receive Date: 20120326
  Receipt Date: 20120316
  Transmission Date: 20120608
  Serious: Yes (Other)
  Sender: FDA-Public Use
  Company Number: PHHY2012IN024187

PATIENT
  Age: 70 Year
  Sex: Male

DRUGS (4)
  1. BICALUTAMIDE [Concomitant]
     Dosage: 50 MG, DAILY
     Route: 048
  2. KETOCONAZOLE [Concomitant]
     Dosage: 200 MG, TID
     Route: 048
  3. HYDROCORTISONE [Concomitant]
  4. ZOLEDRONOC ACID [Suspect]
     Indication: BONE LOSS
     Dosage: 4 MG, QMO
     Route: 042

REACTIONS (3)
  - FEMUR FRACTURE [None]
  - PAIN IN EXTREMITY [None]
  - OSTEOPOROSIS [None]
